FAERS Safety Report 12552890 (Version 3)
Quarter: 2017Q3

REPORT INFORMATION
  Report Type: Report from Study
  Country: CA (occurrence: CA)
  Receive Date: 20160713
  Receipt Date: 20170801
  Transmission Date: 20171127
  Serious: Yes (Death, Hospitalization, Other)
  Sender: FDA-Public Use
  Company Number: CA-009507513-1607CAN004835

PATIENT
  Age: 55 Year
  Sex: Male

DRUGS (3)
  1. POSANOL [Suspect]
     Active Substance: POSACONAZOLE
     Dosage: 200 MG, DAILY
     Route: 048
     Dates: start: 20150213, end: 20160526
  2. POSANOL [Suspect]
     Active Substance: POSACONAZOLE
     Indication: POSTOPERATIVE CARE
     Dosage: 200 MG, DAILY
     Route: 048
     Dates: start: 20160630
  3. POSANOL [Suspect]
     Active Substance: POSACONAZOLE
     Dosage: 120 MG, DAILY X 21 DAYS
     Route: 048
     Dates: start: 20150213

REACTIONS (2)
  - Death [Fatal]
  - Graft versus host disease [Unknown]

NARRATIVE: CASE EVENT DATE: 201606
